FAERS Safety Report 9732207 (Version 2)
Quarter: 2014Q1

REPORT INFORMATION
  Report Type: Spontaneous
  Country: US (occurrence: US)
  Receive Date: 20131205
  Receipt Date: 20140319
  Transmission Date: 20141002
  Serious: Yes (Other)
  Sender: FDA-Public Use
  Company Number: US-UCBSA-104435

PATIENT
  Age: 21 Year
  Sex: Female
  Weight: 70.3 kg

DRUGS (1)
  1. VIMPAT [Suspect]
     Indication: CONVULSION
     Dosage: 250MG ONCE
     Route: 048
     Dates: end: 20131114

REACTIONS (2)
  - Grand mal convulsion [Recovered/Resolved]
  - Convulsion [Recovered/Resolved]
